FAERS Safety Report 8984843 (Version 1)
Quarter: 2012Q4

REPORT INFORMATION
  Report Type: 
  Country: FR (occurrence: FR)
  Receive Date: 20121226
  Receipt Date: 20121226
  Transmission Date: 20130627
  Serious: Yes (Hospitalization)
  Sender: FDA-Public Use
  Company Number: FR-BAYER-2012-132287

PATIENT
  Age: 89 Year
  Sex: Male

DRUGS (6)
  1. CIFLOX [Suspect]
     Indication: SUPERINFECTION
     Dosage: 1 DF, QD
     Route: 048
     Dates: start: 20120828, end: 20120830
  2. LASILIX [Suspect]
     Dosage: 40 mg, QD
     Route: 048
     Dates: start: 2006, end: 20120830
  3. KENZEN [Suspect]
     Dosage: 16 mg, QD
     Route: 048
     Dates: start: 2006, end: 20120830
  4. METFORMIN [Suspect]
     Dosage: 850 mg, BID
     Route: 048
     Dates: end: 20120830
  5. CATAPRESSAN [Concomitant]
  6. LEVOTHYROXIN [Concomitant]

REACTIONS (4)
  - Renal failure acute [Recovered/Resolved]
  - Dehydration [Recovered/Resolved]
  - Hyperkalaemia [Recovered/Resolved]
  - Hyponatraemia [Recovered/Resolved]
